FAERS Safety Report 18382337 (Version 1)
Quarter: 2020Q4

REPORT INFORMATION
  Report Type: Spontaneous
  Country: US (occurrence: US)
  Receive Date: 20201013
  Receipt Date: 20201013
  Transmission Date: 20210114
  Serious: Yes (Hospitalization)
  Sender: FDA-Public Use
  Company Number: None

PATIENT
  Age: 74 Year
  Sex: Male
  Weight: 81 kg

DRUGS (1)
  1. ASCORBIC ACID (ASCORBIC ACID 500MG TAB) [Suspect]
     Active Substance: ASCORBIC ACID
     Indication: IRON DEFICIENCY
     Route: 048
     Dates: start: 20200812, end: 20201006

REACTIONS (2)
  - Nephrolithiasis [None]
  - Urosepsis [None]

NARRATIVE: CASE EVENT DATE: 20201007
